FAERS Safety Report 21118100 (Version 1)
Quarter: 2022Q3

REPORT INFORMATION
  Report Type: Spontaneous
  Country: US (occurrence: US)
  Receive Date: 20220722
  Receipt Date: 20220722
  Transmission Date: 20221027
  Serious: No
  Sender: FDA-Public Use
  Company Number: US-JNJFOC-20220718922

PATIENT
  Age: 60 Year
  Sex: Female

DRUGS (3)
  1. PEPCID AC [Suspect]
     Active Substance: FAMOTIDINE
     Indication: Dyspepsia
     Route: 065
  2. PEPCID AC [Suspect]
     Active Substance: FAMOTIDINE
     Route: 065
  3. PEPCID AC [Suspect]
     Active Substance: FAMOTIDINE
     Route: 065

REACTIONS (1)
  - Blood potassium increased [Not Recovered/Not Resolved]

NARRATIVE: CASE EVENT DATE: 20220705
